FAERS Safety Report 10792919 (Version 3)
Quarter: 2015Q1

REPORT INFORMATION
  Report Type: Spontaneous
  Country: US (occurrence: None)
  Receive Date: 20150211
  Receipt Date: 20150304
  Transmission Date: 20150721
  Serious: Yes (Hospitalization, Other)
  Sender: FDA-Public Use
  Company Number: ADR-2014-01796

PATIENT
  Age: 39 Year
  Sex: Male

DRUGS (3)
  1. BACLOFEN ORAL [Suspect]
     Active Substance: BACLOFEN
  2. LIORESAL [Suspect]
     Active Substance: BACLOFEN
     Indication: MUSCLE SPASTICITY
     Dosage: TAKING UP TO 160 MG OF ORAL BACLOFEN
  3. NUMEROUS UNSPECIFIED MEDS [Suspect]
     Active Substance: UNSPECIFIED INGREDIENT

REACTIONS (8)
  - Device breakage [None]
  - Condition aggravated [None]
  - Neuropathy peripheral [None]
  - Dyspnoea [None]
  - Hypotonia [None]
  - Pneumonia [None]
  - Muscle spasticity [None]
  - Drug ineffective [None]
